FAERS Safety Report 9980997 (Version 1)
Quarter: 2014Q1

REPORT INFORMATION
  Report Type: Spontaneous
  Country: IT (occurrence: None)
  Receive Date: 20140306
  Receipt Date: 20140306
  Transmission Date: 20141002
  Serious: Yes (Other)
  Sender: FDA-Public Use
  Company Number: AUR-APL-2014-012209

PATIENT
  Age: 68 Year
  Sex: Male

DRUGS (2)
  1. TAMSULOSIN (TAMSULOSIN) [Suspect]
     Indication: PRODUCT USED FOR UNKNOWN INDICATION
     Dosage: 1 DOSAGE FORMS, 1 D, ORAL
     Route: 048
     Dates: start: 20130101, end: 20131122
  2. RATACAND PLUS [Suspect]
     Indication: PRODUCT USED FOR UNKNOWN INDICATION
     Dosage: 0.5 DOSAGE FORMS, 1 D, ORAL
     Route: 048
     Dates: start: 20130101, end: 20131122

REACTIONS (1)
  - Syncope [None]
